FAERS Safety Report 25473531 (Version 8)
Quarter: 2025Q3

REPORT INFORMATION
  Report Type: Report from Study
  Country: ZA (occurrence: ZA)
  Receive Date: 20250624
  Receipt Date: 20250825
  Transmission Date: 20251020
  Serious: Yes (Hospitalization, Other)
  Sender: NOVARTIS
  Company Number: ZA-002147023-NVSC2025ZA099262

PATIENT
  Age: 53 Year
  Sex: Female

DRUGS (2)
  1. OFATUMUMAB [Suspect]
     Active Substance: OFATUMUMAB
     Indication: Relapsing-remitting multiple sclerosis
     Dosage: 20 MG, QW (INJECT 20MG AT WEEK ZERO AND ANOTHER 20MG AT WEEK ONE)
     Route: 058
     Dates: start: 20250618, end: 20250623
  2. OFATUMUMAB [Suspect]
     Active Substance: OFATUMUMAB
     Indication: Multiple sclerosis

REACTIONS (16)
  - Multiple sclerosis relapse [Not Recovered/Not Resolved]
  - Muscular weakness [Unknown]
  - Gait inability [Unknown]
  - Asthenia [Unknown]
  - Feeling abnormal [Unknown]
  - Balance disorder [Unknown]
  - Blood pressure increased [Recovering/Resolving]
  - Injection related reaction [Unknown]
  - Fatigue [Recovering/Resolving]
  - Pyrexia [Recovering/Resolving]
  - Tachycardia [Recovering/Resolving]
  - Chills [Unknown]
  - Paralysis [Recovered/Resolved]
  - Illness [Unknown]
  - Hypersensitivity [Unknown]
  - Drug ineffective [Unknown]

NARRATIVE: CASE EVENT DATE: 20250618
